FAERS Safety Report 5851724-0 (Version None)
Quarter: 2008Q3

REPORT INFORMATION
  Report Type: 
  Country: None (occurrence: None)
  Receive Date: 20080820
  Receipt Date: 20080812
  Transmission Date: 20090109
  Serious: Yes (Other)
  Sender: FDA-Public Use
  Company Number: US-ASTRAZENECA-2008UW16546

PATIENT
  Age: 74 Year
  Sex: Male
  Weight: 102.1 kg

DRUGS (3)
  1. CRESTOR [Suspect]
     Indication: HYPERCHOLESTEROLAEMIA
     Route: 048
     Dates: start: 20080201
  2. METOPROLOL TARTRATE [Concomitant]
  3. INDAPAMIDE [Concomitant]

REACTIONS (4)
  - ASTHENIA [None]
  - DYSSTASIA [None]
  - MYALGIA [None]
  - WALKING AID USER [None]
